FAERS Safety Report 5477794-X (Version None)
Quarter: 2007Q4

REPORT INFORMATION
  Report Type: 
  Country: None (occurrence: None)
  Receive Date: 20071003
  Receipt Date: 20071003
  Transmission Date: 20080405
  Serious: Yes (Other)
  Sender: FDA-Public Use
  Company Number: None

PATIENT
  Age: 51 Year
  Sex: Female
  Weight: 54.4316 kg

DRUGS (2)
  1. LIDOCAINE [Suspect]
  2. BETAMETHASONE [Suspect]

REACTIONS (1)
  - INSOMNIA [None]
